FAERS Safety Report 25788393 (Version 1)
Quarter: 2025Q3

REPORT INFORMATION
  Report Type: Spontaneous
  Country: GB (occurrence: GB)
  Receive Date: 20250910
  Receipt Date: 20250910
  Transmission Date: 20251020
  Serious: Yes (Hospitalization)
  Sender: PFIZER
  Company Number: GB-ROCHE-10000375411

PATIENT
  Age: 70 Year
  Sex: Female
  Weight: 52 kg

DRUGS (7)
  1. VINCRISTINE SULFATE [Suspect]
     Active Substance: VINCRISTINE SULFATE
     Indication: Follicular lymphoma
     Dosage: 2 MG, EVERY 3 WEEKS (CYCLES 1 TO 6; DAY 1)
     Route: 042
     Dates: start: 20250721
  2. DOXORUBICIN [Suspect]
     Active Substance: DOXORUBICIN
     Indication: Follicular lymphoma
     Dosage: 80 MG, EVERY 3 WEEKS, (CYCLES 1-6, DAY 1)
     Route: 042
     Dates: start: 20250721
  3. OBINUTUZUMAB [Suspect]
     Active Substance: OBINUTUZUMAB
     Indication: Follicular lymphoma
     Dosage: 1000 MG, EVERY 3 WEEKS, CYCLE 1 (DAY 1, DAY 8, AND DAY 15), THEN Q3W DURING CYCLES 2 8 (ON DAY 1)
     Route: 042
     Dates: start: 20250721
  4. PREDNISONE [Suspect]
     Active Substance: PREDNISONE
     Indication: Follicular lymphoma
     Dosage: 100 MG, 1X/DAY (CYCLES 1-6; DAY 1 TO 5, EVERY 1 DAY)
     Route: 048
     Dates: start: 20250721
  5. CYCLOPHOSPHAMIDE [Suspect]
     Active Substance: CYCLOPHOSPHAMIDE
     Indication: Follicular lymphoma
     Dosage: 1260 MG, EVERY 3 WEEKS
     Route: 042
     Dates: start: 20250721
  6. CALCI D [Concomitant]
     Indication: Osteoporosis
     Dosage: 1 DF, 1X/DAY
     Dates: start: 2025
  7. BISOPROLOL [Concomitant]
     Active Substance: BISOPROLOL
     Dosage: 2.5 MG, 1X/DAY
     Dates: start: 2025

REACTIONS (8)
  - Diarrhoea [Not Recovered/Not Resolved]
  - Micturition urgency [Unknown]
  - Abdominal pain [Unknown]
  - Constipation [Unknown]
  - Pollakiuria [Unknown]
  - Body temperature decreased [Unknown]
  - Asthenia [Unknown]
  - Off label use [Unknown]

NARRATIVE: CASE EVENT DATE: 20250820
